FAERS Safety Report 15128007 (Version 4)
Quarter: 2018Q3

REPORT INFORMATION
  Report Type: Spontaneous
  Country: GB (occurrence: GB)
  Receive Date: 20180710
  Receipt Date: 20180829
  Transmission Date: 20181010
  Serious: Yes (Other)
  Sender: FDA-Public Use
  Company Number: PHHY2018GB038197

PATIENT
  Sex: Male

DRUGS (2)
  1. PROMETAX [Suspect]
     Active Substance: RIVASTIGMINE
     Indication: PARKINSON^S DISEASE
     Dosage: UNK
     Route: 065
  2. PROMETAX [Suspect]
     Active Substance: RIVASTIGMINE
     Indication: HALLUCINATION

REACTIONS (3)
  - Macular degeneration [Unknown]
  - Hallucination [Unknown]
  - Visual impairment [Unknown]
